FAERS Safety Report 8469641 (Version 4)
Quarter: 2012Q4

REPORT INFORMATION
  Report Type: 
  Country: SE (occurrence: SE)
  Receive Date: 20120321
  Receipt Date: 20121210
  Transmission Date: 20130627
  Serious: Yes (Other)
  Sender: FDA-Public Use
  Company Number: PHHY2012SE022838

PATIENT
  Age: 61 Year
  Sex: Male

DRUGS (8)
  1. CLOZAPINE [Suspect]
     Dosage: 100 mg, in the morning
     Route: 048
  2. LEPONEX [Suspect]
     Dosage: 150 mg, at lunch
     Route: 048
  3. CLOZAPINE ACTAVIS [Suspect]
     Dosage: 300 mg, in the evening
     Route: 048
  4. METFORMIN HEXAL SANDOZ [Concomitant]
  5. STESOLID [Concomitant]
  6. NITRAZEPAM [Concomitant]
  7. ABILIFY [Concomitant]
     Dosage: 10 mg, UNK
  8. CISORDINOL [Concomitant]

REACTIONS (7)
  - Feeling abnormal [Not Recovered/Not Resolved]
  - Weight fluctuation [Not Recovered/Not Resolved]
  - Diabetes mellitus [Not Recovered/Not Resolved]
  - Blood pressure increased [Not Recovered/Not Resolved]
  - Heart rate increased [Not Recovered/Not Resolved]
  - Polydipsia [Not Recovered/Not Resolved]
  - Incontinence [Not Recovered/Not Resolved]
